FAERS Safety Report 5384397-4 (Version None)
Quarter: 2007Q3

REPORT INFORMATION
  Report Type: 
  Country: None (occurrence: None)
  Receive Date: 20070711
  Receipt Date: 20070705
  Transmission Date: 20080115
  Serious: Yes (Hospitalization)
  Sender: FDA-Public Use
  Company Number: HQWYE918806JUL07

PATIENT
  Sex: Female

DRUGS (2)
  1. CORDARONE [Suspect]
     Dosage: 200 MG, FREQUENCY UNSPECIFIED
     Route: 048
  2. EUTHYROX [Concomitant]
     Indication: HYPOTHYROIDISM
     Dosage: DOSE UNKNOWN
     Route: 048
     Dates: start: 20070201

REACTIONS (3)
  - HEART RATE DECREASED [None]
  - NAUSEA [None]
  - VOMITING [None]
